FAERS Safety Report 4830335-X (Version None)
Quarter: 2005Q4

REPORT INFORMATION
  Report Type: 
  Country: None (occurrence: None)
  Receive Date: 20051114
  Receipt Date: 20051031
  Transmission Date: 20060501
  Serious: Yes (Other)
  Sender: FDA-Public Use
  Company Number: 27899

PATIENT
  Age: 4 Year
  Sex: Female

DRUGS (4)
  1. ALDARA [Suspect]
     Indication: MOLLUSCUM CONTAGIOSUM
     Dosage: TOPICAL
     Route: 061
     Dates: start: 20040604, end: 20040922
  2. ZYRTEC [Concomitant]
  3. SINGULAIR [Concomitant]
  4. ALBUTEROL [Concomitant]

REACTIONS (5)
  - APPLICATION SITE DERMATITIS [None]
  - ECZEMA [None]
  - POST INFLAMMATORY PIGMENTATION CHANGE [None]
  - RASH PAPULAR [None]
  - VITILIGO [None]
